FAERS Safety Report 4687946-4 (Version None)
Quarter: 2005Q2

REPORT INFORMATION
  Report Type: 
  Country: None (occurrence: None)
  Receive Date: 20050610
  Receipt Date: 20050531
  Transmission Date: 20051028
  Serious: Yes (Hospitalization)
  Sender: FDA-Public Use
  Company Number: FR-GLAXOSMITHKLINE-B0383436A

PATIENT
  Age: 21 Year
  Sex: Male

DRUGS (10)
  1. SERETIDE [Suspect]
     Indication: ASTHMA
     Route: 055
     Dates: end: 20050206
  2. CELESTENE [Suspect]
     Dosage: 4MG PER DAY
     Route: 048
     Dates: start: 20050128, end: 20050203
  3. IBUPROFEN [Suspect]
     Dosage: 400MG FOUR TIMES PER DAY
     Route: 048
     Dates: start: 20050121, end: 20050128
  4. AUGMENTIN '125' [Concomitant]
     Route: 048
     Dates: start: 20050128, end: 20050203
  5. AMOXICILLIN [Concomitant]
     Indication: NASOPHARYNGITIS
     Route: 065
     Dates: start: 20050118
  6. ACETAMINOPHEN [Concomitant]
     Route: 048
     Dates: start: 20050128, end: 20050203
  7. RHINOFLUIMUCIL [Concomitant]
     Indication: NASOPHARYNGITIS
     Dates: start: 20050118
  8. HEXASPRAY [Concomitant]
     Indication: NASOPHARYNGITIS
     Dates: start: 20050118
  9. CARBOCYSTEINE [Concomitant]
     Indication: NASOPHARYNGITIS
     Dates: start: 20050518
  10. ZOLOFT [Concomitant]

REACTIONS (12)
  - BRONCHOPULMONARY ASPERGILLOSIS [None]
  - CHEST PAIN [None]
  - COUGH [None]
  - DYSPNOEA EXACERBATED [None]
  - HAEMOPTYSIS [None]
  - INFLUENZA [None]
  - LYMPHADENOPATHY [None]
  - MYALGIA [None]
  - NASOPHARYNGITIS [None]
  - PULMONARY ALVEOLAR HAEMORRHAGE [None]
  - RALES [None]
  - SPUTUM DISCOLOURED [None]
